FAERS Safety Report 19064261 (Version 1)
Quarter: 2021Q1

REPORT INFORMATION
  Report Type: Spontaneous
  Country: US (occurrence: US)
  Receive Date: 20210326
  Receipt Date: 20210326
  Transmission Date: 20210420
  Serious: Yes (Death, Other)
  Sender: FDA-Public Use
  Company Number: US-LANTHEUS-LMI-2015-00090

PATIENT
  Age: 76 Year
  Sex: Male

DRUGS (1)
  1. DEFINITY [Suspect]
     Active Substance: PERFLUTREN
     Indication: STRESS ECHOCARDIOGRAM
     Dosage: DOSE, DILUENT AND ROUTE OF ADMINSITRATION NOT PROVIDED
     Route: 042

REACTIONS (12)
  - Cardiac arrest [Fatal]
  - Flushing [Recovered/Resolved]
  - Kounis syndrome [Unknown]
  - Electrocardiogram ST segment elevation [Recovered/Resolved]
  - Pulmonary haemorrhage [Fatal]
  - Bradycardia [Unknown]
  - Ventricular hypokinesia [Unknown]
  - Chest pain [Recovered/Resolved]
  - Hyperhidrosis [Recovered/Resolved]
  - Hypoxia [Unknown]
  - Hypotension [Unknown]
  - Arteriospasm coronary [Fatal]
